FAERS Safety Report 25686434 (Version 1)
Quarter: 2025Q3

REPORT INFORMATION
  Report Type: Spontaneous
  Country: US (occurrence: US)
  Receive Date: 20250815
  Receipt Date: 20250815
  Transmission Date: 20251021
  Serious: Yes (Hospitalization, Other)
  Sender: MERCK SHARP & DOHME LLC
  Company Number: US-009507513-2317825

PATIENT
  Age: 82 Year
  Sex: Male

DRUGS (1)
  1. PEMBROLIZUMAB [Suspect]
     Active Substance: PEMBROLIZUMAB
     Indication: Desmoplastic melanoma
     Dosage: A TOTAL OF 3 DOSES

REACTIONS (3)
  - Guillain-Barre syndrome [Recovering/Resolving]
  - Chronic inflammatory demyelinating polyradiculoneuropathy [Unknown]
  - Fall [Unknown]
